FAERS Safety Report 4704148-3 (Version None)
Quarter: 2005Q2

REPORT INFORMATION
  Report Type: 
  Country: None (occurrence: None)
  Receive Date: 20050629
  Receipt Date: 20050620
  Transmission Date: 20051028
  Serious: Yes (Other)
  Sender: FDA-Public Use
  Company Number: HQWYE596421JUN05

PATIENT
  Sex: Female

DRUGS (2)
  1. EFFEXOR XR [Suspect]
     Indication: DEPRESSION
     Dosage: 225 MG 1X PER 1 DAY
     Dates: start: 20050401
  2. SEROQUEL [Concomitant]

REACTIONS (3)
  - DRUG EFFECT DECREASED [None]
  - HOMICIDAL IDEATION [None]
  - NIGHT SWEATS [None]
